FAERS Safety Report 25368591 (Version 1)
Quarter: 2025Q2

REPORT INFORMATION
  Report Type: Spontaneous
  Country: CN (occurrence: CN)
  Receive Date: 20250528
  Receipt Date: 20250528
  Transmission Date: 20250716
  Serious: Yes (Other)
  Sender: PFIZER
  Company Number: CN-PFIZER INC-PV202500062768

PATIENT
  Age: 36 Year
  Sex: Female
  Weight: 50 kg

DRUGS (7)
  1. LINEZOLID [Suspect]
     Active Substance: LINEZOLID
     Indication: Pneumonia
     Dosage: 600 MG, 2X/DAY
     Route: 048
     Dates: start: 20250505, end: 20250509
  2. ENOXAPARIN SODIUM [Suspect]
     Active Substance: ENOXAPARIN SODIUM
     Indication: Thrombosis prophylaxis
     Dosage: 0.6 ML, 1X/DAY
     Route: 058
     Dates: start: 20250504, end: 20250514
  3. LORATADINE [Suspect]
     Active Substance: LORATADINE
     Indication: Urticaria
     Dosage: 10 MG, 1X/DAY
     Route: 048
     Dates: start: 20250509, end: 20250515
  4. RISPERIDONE [Concomitant]
     Active Substance: RISPERIDONE
     Indication: Dysphoria
     Dosage: 1 MG, 2X/DAY
     Route: 048
     Dates: start: 20250501, end: 20250506
  5. RISPERIDONE [Concomitant]
     Active Substance: RISPERIDONE
     Dosage: 1 MG, 1X/DAY
     Route: 048
     Dates: start: 20250507, end: 20250514
  6. ALLTRIDE [Concomitant]
     Indication: Pneumonia
     Dosage: 0.8 G, 2X/DAY
     Route: 048
     Dates: start: 20250507, end: 20250515
  7. CHLORPHENIRAMINE MALEATE [Concomitant]
     Active Substance: CHLORPHENIRAMINE MALEATE
     Indication: Urticaria
     Dosage: 4 MG, 3X/DAY
     Route: 048
     Dates: start: 20250510, end: 20250515

REACTIONS (2)
  - Hepatic failure [Recovering/Resolving]
  - Urticaria [Unknown]

NARRATIVE: CASE EVENT DATE: 20250501
